FAERS Safety Report 24637877 (Version 1)
Quarter: 2024Q4

REPORT INFORMATION
  Report Type: Spontaneous
  Country: US (occurrence: None)
  Receive Date: 20241119
  Receipt Date: 20241119
  Transmission Date: 20250115
  Serious: Yes (Disabling)
  Sender: Public
  Company Number: None

PATIENT
  Age: 60 Year
  Sex: Female
  Weight: 86.18 kg

DRUGS (1)
  1. WEGOVY [Suspect]
     Active Substance: SEMAGLUTIDE
     Indication: Obesity
     Route: 058
     Dates: start: 202404, end: 20241105

REACTIONS (3)
  - Optic ischaemic neuropathy [None]
  - Visual acuity reduced [None]
  - Papilloedema [None]

NARRATIVE: CASE EVENT DATE: 20241031
